FAERS Safety Report 11121309 (Version 2)
Quarter: 2015Q2

REPORT INFORMATION
  Report Type: Spontaneous
  Country: US (occurrence: US)
  Receive Date: 20150519
  Receipt Date: 20150522
  Transmission Date: 20150821
  Serious: Yes (Death, Other)
  Sender: FDA-Public Use
  Company Number: US-RB PHARMACEUTICALS LIMITED-RB-079032-2015

PATIENT
  Sex: Male

DRUGS (1)
  1. SUBOXONE [Suspect]
     Active Substance: BUPRENORPHINE HYDROCHLORIDE\NALOXONE HYDROCHLORIDE
     Indication: DRUG DEPENDENCE
     Dosage: VARIOUS TAPERED DOSES
     Route: 060

REACTIONS (10)
  - Drug withdrawal syndrome [Recovered/Resolved]
  - Haemorrhage [Recovered/Resolved]
  - Completed suicide [Fatal]
  - Intentional underdose [Recovered/Resolved]
  - Depression [Recovered/Resolved]
  - Wrong technique in drug usage process [Recovered/Resolved]
  - Pain [Recovered/Resolved]
  - Pyrexia [Recovered/Resolved]
  - Muscle spasms [Recovered/Resolved]
  - Vomiting [Recovered/Resolved]
